FAERS Safety Report 8594271-8 (Version None)
Quarter: 2012Q3

REPORT INFORMATION
  Report Type: 
  Country: None (occurrence: None)
  Receive Date: 20120815
  Receipt Date: 20120807
  Transmission Date: 20120928
  Serious: No
  Sender: FDA-Public Use
  Company Number: US-009507513-1208USA003398

PATIENT

DRUGS (3)
  1. INVANZ [Suspect]
     Indication: OSTEOMYELITIS CHRONIC
     Dosage: UNK
     Route: 042
     Dates: start: 20110318, end: 20110425
  2. KEFLEX [Concomitant]
  3. ESTRADIOL [Concomitant]

REACTIONS (4)
  - OSTEOMYELITIS [None]
  - LOCAL SWELLING [None]
  - DRUG INTOLERANCE [None]
  - PAIN [None]
